FAERS Safety Report 21770763 (Version 1)
Quarter: 2022Q4

REPORT INFORMATION
  Report Type: Report from Study
  Country: US (occurrence: US)
  Receive Date: 20221223
  Receipt Date: 20221223
  Transmission Date: 20230112
  Serious: Yes (Other)
  Sender: FDA-Public Use
  Company Number: US-BEH-2022153519

PATIENT
  Sex: Female
  Weight: 155.9 kg

DRUGS (1)
  1. HIZENTRA [Suspect]
     Active Substance: HUMAN IMMUNOGLOBULIN G
     Indication: Primary immunodeficiency syndrome
     Dosage: UNK
     Route: 058
     Dates: start: 20221215

REACTIONS (5)
  - Skin bacterial infection [Unknown]
  - Headache [Unknown]
  - Night sweats [Unknown]
  - Nausea [Unknown]
  - Diarrhoea [Unknown]
